FAERS Safety Report 23092059 (Version 9)
Quarter: 2024Q2

REPORT INFORMATION
  Report Type: Spontaneous
  Country: GB (occurrence: GB)
  Receive Date: 20231021
  Receipt Date: 20240625
  Transmission Date: 20240716
  Serious: Yes (Life-Threatening, Hospitalization, Other)
  Sender: FDA-Public Use
  Company Number: GB-CELLTRION INC.-2023GB020108

PATIENT

DRUGS (35)
  1. RITUXIMAB [Suspect]
     Active Substance: RITUXIMAB
     Indication: Follicular lymphoma
     Dosage: 800 MILLIGRAM (FOR 5 CYCLES)
     Route: 042
     Dates: start: 20230316
  2. RITUXIMAB [Suspect]
     Active Substance: RITUXIMAB
     Dosage: 800 MILLIGRAM (FOR 5 CYCLES)
     Route: 042
     Dates: start: 20230507
  3. RITUXIMAB [Suspect]
     Active Substance: RITUXIMAB
     Dosage: MOST RECENT DOSE OF RITUXIMAB PRIOR TO SAE (FIRST AND SECOND EPISODE) WAS ON 10/MAY/2023.;
     Route: 042
     Dates: start: 20230510
  4. RITUXIMAB [Suspect]
     Active Substance: RITUXIMAB
     Dosage: 800 MILLIGRAM (FOR 5 CYCLES)
     Route: 042
     Dates: start: 20230705
  5. RITUXIMAB [Suspect]
     Active Substance: RITUXIMAB
     Dosage: UNK
     Route: 065
  6. RITUXIMAB [Suspect]
     Active Substance: RITUXIMAB
     Dosage: MOST RECENT DOSE OF RITUXIMAB PRIOR TO SAE (FIRST AND SECOND EPISODE) WAS ON 10/MAY/2023.;
     Route: 042
  7. LENALIDOMIDE [Suspect]
     Active Substance: LENALIDOMIDE
     Indication: Follicular lymphoma
     Dosage: 10 MILLIGRAM, QD (DAYS 1 TO 21 FOR 12 CYCLES), ON 19/SEP/2023, LAST DOSE OF LENALIDOMIDE PRIOR TO TH
     Route: 048
     Dates: start: 20230315
  8. LENALIDOMIDE [Suspect]
     Active Substance: LENALIDOMIDE
     Dosage: MOST RECENT DOSE OF LENALIDOMIDE PRIOR TO SAE (FIRST EPISODE) WAS ON 30/MAY/2023
     Route: 048
     Dates: start: 20230530
  9. LENALIDOMIDE [Suspect]
     Active Substance: LENALIDOMIDE
     Dosage: 5 MILLIGRAM, QD (DAYS 1 TO 21 FOR 12 CYCLES)
     Route: 048
     Dates: start: 20230614
  10. LENALIDOMIDE [Suspect]
     Active Substance: LENALIDOMIDE
     Dosage: MOST RECENT DOSE OF LENALIDOMIDE PRIOR TO SAE (SECOND EPISODE) WAS ON 27/JUN/2023.; ;
     Route: 048
     Dates: start: 20230627, end: 20230919
  11. LENALIDOMIDE [Suspect]
     Active Substance: LENALIDOMIDE
     Dosage: 5 MILLIGRAM, QD (DAYS 1 TO 21 FOR 12 CYCLES); (CUMULATIVE DOSE:959.7917)
     Route: 048
     Dates: start: 20230712
  12. LENALIDOMIDE [Suspect]
     Active Substance: LENALIDOMIDE
     Dosage: MOST RECENT DOSE OF LENALIDOMIDE PRIOR TO SAE (SECOND EPISODE) WAS ON 27/JUN/2023.; ;
     Route: 048
     Dates: start: 20230627
  13. LENALIDOMIDE [Suspect]
     Active Substance: LENALIDOMIDE
     Dosage: MOST RECENT DOSE OF LENALIDOMIDE PRIOR TO SAE (FIRST EPISODE) WAS ON 30/MAY/2023;
     Route: 048
     Dates: end: 20230919
  14. LENALIDOMIDE [Suspect]
     Active Substance: LENALIDOMIDE
     Dosage: MOST RECENT DOSE OF LENALIDOMIDE PRIOR TO SAE (FIRST EPISODE) WAS ON 30/MAY/2023; ;
     Route: 048
     Dates: start: 20230530
  15. LENALIDOMIDE [Suspect]
     Active Substance: LENALIDOMIDE
     Dosage: MOST RECENT DOSE OF LENALIDOMIDE PRIOR TO SAE (SECOND EPISODE) WAS ON 27/JUN/2023.; ;
     Route: 048
  16. LENALIDOMIDE [Suspect]
     Active Substance: LENALIDOMIDE
     Dosage: MOST RECENT DOSE OF LENALIDOMIDE PRIOR TO SAE (SECOND EPISODE) WAS ON 27/JUN/2023.; ;
     Route: 048
  17. LENALIDOMIDE [Suspect]
     Active Substance: LENALIDOMIDE
     Dosage: MOST RECENT DOSE OF LENALIDOMIDE PRIOR TO SAE (FIRST EPISODE) WAS ON 30/MAY/2023; ;
     Route: 048
  18. LENALIDOMIDE [Suspect]
     Active Substance: LENALIDOMIDE
     Dosage: MOST RECENT DOSE OF LENALIDOMIDE PRIOR TO SAE (FIRST EPISODE) WAS ON 30/MAY/2023;
     Route: 048
     Dates: end: 20230919
  19. LENALIDOMIDE [Suspect]
     Active Substance: LENALIDOMIDE
     Dosage: MOST RECENT DOSE OF LENALIDOMIDE PRIOR TO SAE (SECOND EPISODE)
     Route: 048
     Dates: end: 20230919
  20. LENALIDOMIDE [Suspect]
     Active Substance: LENALIDOMIDE
     Dosage: UNK
     Route: 065
  21. LENALIDOMIDE [Suspect]
     Active Substance: LENALIDOMIDE
     Dosage: 10 MILLIGRAM (DAYS 1 TO 21 FOR 12 CYCLES), ON 19/SEP/2023, LAST DOSE OF LENALIDOMIDE PRIOR TO THE SA
     Route: 048
     Dates: start: 20230315
  22. LENALIDOMIDE [Suspect]
     Active Substance: LENALIDOMIDE
     Dosage: 5 MILLIGRAM (DAYS 1 TO 21 FOR 12 CYCLES)
     Route: 048
     Dates: start: 20230614
  23. LENALIDOMIDE [Suspect]
     Active Substance: LENALIDOMIDE
     Dosage: 5 MILLIGRAM (DAYS 1 TO 21 FOR 12 CYCLES)
     Route: 048
     Dates: start: 20230712
  24. TAFASITAMAB [Suspect]
     Active Substance: TAFASITAMAB
     Indication: Follicular lymphoma
     Dosage: FOR 12 CYCLES WEEKLY THE FIRST 3 CYCLES AND Q2W
     Route: 042
     Dates: start: 20230315, end: 20230913
  25. TAFASITAMAB [Suspect]
     Active Substance: TAFASITAMAB
     Dosage: MOST RECENT DOSE OF PLACEBO PRIOR TO SAE (FIRST EPISODE)
     Route: 042
     Dates: start: 20230531
  26. TAFASITAMAB [Suspect]
     Active Substance: TAFASITAMAB
     Dosage: UNK
     Route: 042
     Dates: start: 20230621
  27. TAFASITAMAB [Suspect]
     Active Substance: TAFASITAMAB
     Dosage: UNK
     Route: 042
     Dates: start: 20230719
  28. TAFASITAMAB [Suspect]
     Active Substance: TAFASITAMAB
     Dosage: UNK
     Route: 065
  29. TAFASITAMAB [Suspect]
     Active Substance: TAFASITAMAB
     Dosage: MOST RECENT DOSE OF INCMOR00208/PLACEBO PRIOR TO SAE (FIRST EPISODE) WAS ON 31/MAY/2023; ;
     Route: 042
     Dates: start: 20230531
  30. TAFASITAMAB [Suspect]
     Active Substance: TAFASITAMAB
     Dosage: UNK
     Route: 042
     Dates: end: 20230913
  31. TAFASITAMAB [Suspect]
     Active Substance: TAFASITAMAB
     Dosage: MOST RECENT DOSE OF INCMOR00208/PLACEBO PRIOR TO SAE (FIRST EPISODE) WAS ON 31/MAY/2023; ;
     Route: 042
  32. TAFASITAMAB [Suspect]
     Active Substance: TAFASITAMAB
     Dosage: MOST RECENT DOSE OF INCMOR00208/PLACEBO PRIOR TO SAE (FIRST EPISODE) WAS ON 31/MAY/2023; ;
     Route: 042
  33. TAFASITAMAB [Suspect]
     Active Substance: TAFASITAMAB
     Dosage: FOR 12 CYCLES WEEKLY THE FIRST 3 CYCLES AND Q2W. ON 13/SEP/2023, LAST DOSE OF INCMOR00208/PLACEBO...
     Route: 042
     Dates: start: 20230315
  34. PEGFILGRASTIM [Concomitant]
     Active Substance: PEGFILGRASTIM
     Indication: Product used for unknown indication
     Dosage: UNK
     Route: 058
     Dates: start: 20230607
  35. PEGFILGRASTIM [Concomitant]
     Active Substance: PEGFILGRASTIM
     Dosage: UNK
     Route: 058
     Dates: start: 20230703

REACTIONS (4)
  - Neutrophil count decreased [Recovered/Resolved]
  - Neutrophil count decreased [Unknown]
  - Pneumonia [Unknown]
  - Disease progression [Unknown]

NARRATIVE: CASE EVENT DATE: 20230605
